FAERS Safety Report 15410045 (Version 1)
Quarter: 2018Q3

REPORT INFORMATION
  Report Type: Spontaneous
  Country: US (occurrence: US)
  Receive Date: 20180921
  Receipt Date: 20180921
  Transmission Date: 20181010
  Serious: No
  Sender: FDA-Public Use
  Company Number: US-BAUSCH-BL-2017-023152

PATIENT
  Age: 41 Year
  Sex: Female

DRUGS (2)
  1. DIASTAT [Suspect]
     Active Substance: DIAZEPAM
     Dosage: AS NEEDED
     Route: 054
     Dates: start: 20170731
  2. DIASTAT [Suspect]
     Active Substance: DIAZEPAM
     Indication: SEIZURE
     Dosage: AS NEEDED
     Route: 054

REACTIONS (2)
  - Initial insomnia [Unknown]
  - Pain [Unknown]

NARRATIVE: CASE EVENT DATE: 20170731
